FAERS Safety Report 17532398 (Version 4)
Quarter: 2021Q2

REPORT INFORMATION
  Report Type: Report from Study
  Country: US (occurrence: US)
  Receive Date: 20200312
  Receipt Date: 20210514
  Transmission Date: 20210716
  Serious: Yes (Hospitalization, Other)
  Sender: FDA-Public Use
  Company Number: US-ASTELLAS-2019US001780

PATIENT
  Sex: Male

DRUGS (8)
  1. ENZALUTAMIDE [Suspect]
     Active Substance: ENZALUTAMIDE
     Dosage: 80 MG (2 CAPSULES), ONCE DAILY
     Route: 048
     Dates: start: 20190114
  2. PROVENGE [Concomitant]
     Active Substance: SIPULEUCEL-T
     Indication: PROSTATE CANCER
     Dosage: UNK UNK, UNKNOWN FREQ.
     Route: 065
  3. ENZALUTAMIDE [Suspect]
     Active Substance: ENZALUTAMIDE
     Dosage: 120 MG (3 CAPSULES), ONCE DAILY
     Route: 048
     Dates: start: 20190112
  4. ENZALUTAMIDE [Suspect]
     Active Substance: ENZALUTAMIDE
     Dosage: 160 MG (4 CAPSULES), ONCE DAILY
     Route: 048
  5. ENZALUTAMIDE [Suspect]
     Active Substance: ENZALUTAMIDE
     Indication: HORMONE-REFRACTORY PROSTATE CANCER
     Route: 048
  6. ENZALUTAMIDE [Suspect]
     Active Substance: ENZALUTAMIDE
     Dosage: 120 MG (3 CAPSULES), ONCE DAILY
     Route: 048
     Dates: start: 20190113
  7. ENZALUTAMIDE [Suspect]
     Active Substance: ENZALUTAMIDE
     Route: 048
     Dates: end: 20210313
  8. ENZALUTAMIDE [Suspect]
     Active Substance: ENZALUTAMIDE
     Route: 048

REACTIONS (4)
  - Weight decreased [Recovered/Resolved]
  - Delirium [Unknown]
  - Malignant neoplasm progression [Not Recovered/Not Resolved]
  - Adult failure to thrive [Recovered/Resolved]
